FAERS Safety Report 19316926 (Version 1)
Quarter: 2021Q2

REPORT INFORMATION
  Report Type: Report from Study
  Country: US (occurrence: US)
  Receive Date: 20210527
  Receipt Date: 20210527
  Transmission Date: 20210717
  Serious: No
  Sender: FDA-Public Use
  Company Number: US-KYOWAKIRIN-2021BKK008358

PATIENT

DRUGS (2)
  1. CRYSVITA [Suspect]
     Active Substance: BUROSUMAB-TWZA
     Indication: HEREDITARY HYPOPHOSPHATAEMIC RICKETS
     Dosage: 70 MG IN TOTAL (COMBINATION OF STRENGTHS 10 MG/ML AND 30 MG/ML), EVERY 28 DAYS
     Route: 058
     Dates: start: 20200422
  2. CRYSVITA [Suspect]
     Active Substance: BUROSUMAB-TWZA
     Indication: HEREDITARY HYPOPHOSPHATAEMIC RICKETS
     Dosage: 70 MG IN TOTAL (COMBINATION OF STRENGTHS 10 MG/ML AND 30 MG/ML), EVERY 28 DAYS
     Route: 058
     Dates: start: 20200422

REACTIONS (2)
  - Pruritus [Unknown]
  - Restless legs syndrome [Unknown]
